FAERS Safety Report 9252139 (Version 1)
Quarter: 2013Q2

REPORT INFORMATION
  Report Type: Spontaneous
  Country: AR (occurrence: AR)
  Receive Date: 20130424
  Receipt Date: 20130424
  Transmission Date: 20140414
  Serious: Yes (Death, Other)
  Sender: FDA-Public Use
  Company Number: AR-PFIZER INC-2013080330

PATIENT
  Age: 53 Year
  Sex: Male
  Weight: 76 kg

DRUGS (2)
  1. SUNITINIB MALATE [Suspect]
     Indication: RENAL CELL CARCINOMA
     Dosage: 50 MG, 4WEEKS ON AND 2WEEKS OFF
     Dates: start: 200710
  2. SUNITINIB MALATE [Suspect]
     Dosage: 37.5 MG, 4WEEKS ON AND 2WEEKS OFF
     Dates: start: 200801

REACTIONS (14)
  - Disease progression [Fatal]
  - Renal cell carcinoma [Fatal]
  - Posterior reversible encephalopathy syndrome [Recovered/Resolved]
  - Clonic convulsion [Recovered/Resolved]
  - Haemoptysis [Unknown]
  - Palmar-plantar erythrodysaesthesia syndrome [Unknown]
  - Asthenia [Unknown]
  - Hypertension [Unknown]
  - Dermatitis [Unknown]
  - Anaemia [Unknown]
  - Mucosal inflammation [Unknown]
  - Activities of daily living impaired [Unknown]
  - Erythema [Unknown]
  - Blister [Unknown]
